FAERS Safety Report 24148548 (Version 1)
Quarter: 2024Q3

REPORT INFORMATION
  Report Type: Spontaneous
  Country: US (occurrence: US)
  Receive Date: 20240729
  Receipt Date: 20240729
  Transmission Date: 20241016
  Serious: Yes (Other)
  Sender: BAYER
  Company Number: US-BAYER-2024A109076

PATIENT
  Age: 76 Year
  Sex: Male

DRUGS (1)
  1. KOVALTRY [Suspect]
     Active Substance: ANTIHEMOPHILIC FACTOR, HUMAN RECOMBINANT
     Dosage: 2 DF, PRN
     Dates: start: 20231025

REACTIONS (3)
  - Haemarthrosis [None]
  - Pain [None]
  - Wound [None]

NARRATIVE: CASE EVENT DATE: 20240720
